FAERS Safety Report 15063582 (Version 1)
Quarter: 2018Q2

REPORT INFORMATION
  Report Type: Spontaneous
  Country: US (occurrence: US)
  Receive Date: 20180625
  Receipt Date: 20180625
  Transmission Date: 20180711
  Serious: Yes (Other)
  Sender: FDA-Public Use
  Company Number: PHEH2018US021096

PATIENT
  Sex: Female

DRUGS (1)
  1. HYDROCORTISONE+NEOMYCIN SULFATE+POLYMYXIN B SUFLATE [Suspect]
     Active Substance: HYDROCORTISONE\NEOMYCIN SULFATE\POLYMYXIN B SULFATE
     Indication: PRODUCT USED FOR UNKNOWN INDICATION
     Route: 047

REACTIONS (6)
  - Vertigo [Unknown]
  - Hyperacusis [Unknown]
  - Deafness [Unknown]
  - Migraine [Unknown]
  - Photophobia [Unknown]
  - Headache [Unknown]
